FAERS Safety Report 4462045-5 (Version None)
Quarter: 2004Q3

REPORT INFORMATION
  Report Type: 
  Country: None (occurrence: None)
  Receive Date: 20040924
  Receipt Date: 20040914
  Transmission Date: 20050211
  Serious: No
  Sender: FDA-Public Use
  Company Number: 2004AC00322

PATIENT
  Age: 88 Year
  Sex: Female

DRUGS (2)
  1. LIDOCAINE [Suspect]
     Indication: LOCAL ANAESTHESIA
     Dosage: 2 ML ONCE PNEU
  2. LIDOCAINE [Suspect]
     Indication: LOCAL ANAESTHESIA
     Dosage: 2 ML ONCE TP
     Route: 064

REACTIONS (4)
  - ANAESTHETIC COMPLICATION [None]
  - CORNEAL OEDEMA [None]
  - DESCEMET'S MEMBRANE DISORDER [None]
  - RETINAL ARTERY OCCLUSION [None]
